FAERS Safety Report 9085335 (Version 1)
Quarter: 2013Q1

REPORT INFORMATION
  Report Type: Report from Study
  Country: US (occurrence: US)
  Receive Date: 20130131
  Receipt Date: 20130131
  Transmission Date: 20140127
  Serious: No
  Sender: FDA-Public Use
  Company Number: US-ABBOTT-12P-163-0997602-00

PATIENT
  Age: 55 Year
  Sex: Male

DRUGS (2)
  1. HUMIRA [Suspect]
     Indication: CROHN^S DISEASE
     Dates: start: 2007, end: 2010
  2. OTC ANTIDIARRHEAL [Concomitant]
     Dosage: 1 TAB IN THE MORNING AND 1 TAB IN THE EVENING; IT^S A LITTLE BLUE PILL

REACTIONS (1)
  - Abdominal pain [Recovered/Resolved]
